FAERS Safety Report 10031707 (Version 1)
Quarter: 2014Q1

REPORT INFORMATION
  Report Type: Spontaneous
  Country: US (occurrence: US)
  Receive Date: 20140324
  Receipt Date: 20140324
  Transmission Date: 20141002
  Serious: No
  Sender: FDA-Public Use
  Company Number: US-PFIZER INC-2014083561

PATIENT
  Sex: Female

DRUGS (6)
  1. CELEBREX [Suspect]
     Dosage: UNK
  2. NEURONTIN [Suspect]
     Dosage: UNK
  3. PROTONIX [Suspect]
     Dosage: UNK
  4. LYRICA [Suspect]
     Dosage: UNK
  5. ZOLOFT [Suspect]
     Dosage: UNK
  6. DETROL LA [Suspect]
     Dosage: UNK

REACTIONS (1)
  - Influenza [Recovered/Resolved]
